FAERS Safety Report 12393599 (Version 5)
Quarter: 2016Q3

REPORT INFORMATION
  Report Type: Spontaneous
  Country: US (occurrence: US)
  Receive Date: 20160523
  Receipt Date: 20160920
  Transmission Date: 20161109
  Serious: No
  Sender: FDA-Public Use
  Company Number: US-PFIZER INC-2016238245

PATIENT
  Age: 68 Year
  Sex: Female
  Weight: 65 kg

DRUGS (6)
  1. AROMASIN [Suspect]
     Active Substance: EXEMESTANE
     Dosage: UNK
  2. AROMASIN [Suspect]
     Active Substance: EXEMESTANE
     Indication: BREAST CANCER FEMALE
     Dosage: 25 MG, 1X/DAY
     Route: 048
     Dates: start: 201512
  3. ASPIRIN. [Concomitant]
     Active Substance: ASPIRIN
     Indication: PLATELET DISORDER
     Dosage: 81 MG, 1X/DAY
     Route: 048
  4. AROMASIN [Suspect]
     Active Substance: EXEMESTANE
     Indication: HORMONE THERAPY
     Dosage: 25 MG, 1X/DAY
     Route: 048
     Dates: start: 20160512
  5. PAROXETINE. [Concomitant]
     Active Substance: PAROXETINE
     Indication: ANXIETY
     Dosage: 10 MG, 1X/DAY
     Route: 048
  6. ALPRAZOLAM. [Concomitant]
     Active Substance: ALPRAZOLAM
     Indication: ANXIETY
     Dosage: 0.25 MG, 3X/DAY
     Route: 048

REACTIONS (3)
  - Arthralgia [Not Recovered/Not Resolved]
  - Condition aggravated [Not Recovered/Not Resolved]
  - Hypersensitivity [Not Recovered/Not Resolved]

NARRATIVE: CASE EVENT DATE: 201607
